FAERS Safety Report 16066183 (Version 2)
Quarter: 2019Q1

REPORT INFORMATION
  Report Type: Spontaneous
  Country: DE (occurrence: DE)
  Receive Date: 20190313
  Receipt Date: 20190313
  Transmission Date: 20190418
  Serious: Yes (Other)
  Sender: FDA-Public Use
  Company Number: PHHY2019DE048121

PATIENT
  Age: 1 Year
  Sex: Female

DRUGS (4)
  1. CICLOSPORIN [Suspect]
     Active Substance: CYCLOSPORINE
     Indication: IMMUNOSUPPRESSANT DRUG THERAPY
  2. BASILIXIMAB [Suspect]
     Active Substance: BASILIXIMAB
     Indication: IMMUNOSUPPRESSANT DRUG THERAPY
  3. BASILIXIMAB [Suspect]
     Active Substance: BASILIXIMAB
     Indication: LIVER TRANSPLANT
     Route: 065
  4. CICLOSPORIN [Suspect]
     Active Substance: CYCLOSPORINE
     Indication: LIVER TRANSPLANT
     Route: 065

REACTIONS (1)
  - Hepatic infiltration eosinophilic [Unknown]
